FAERS Safety Report 19531369 (Version 2)
Quarter: 2021Q3

REPORT INFORMATION
  Report Type: Spontaneous
  Country: FR (occurrence: FR)
  Receive Date: 20210713
  Receipt Date: 20210722
  Transmission Date: 20211014
  Serious: Yes (Other)
  Sender: FDA-Public Use
  Company Number: NVSC2021FR151584

PATIENT
  Age: 1 Month
  Sex: Male
  Weight: 6.8 kg

DRUGS (29)
  1. FERROSTRANE [Suspect]
     Active Substance: SODIUM FEREDETATE
     Indication: ANAEMIA NEONATAL
     Dosage: 1 ML, Q12H
     Route: 048
     Dates: start: 20210528
  2. GLUCOSE [Suspect]
     Active Substance: DEXTROSE
     Indication: PARENTERAL NUTRITION
     Dosage: 243 ML, Q24H (1ST BAG, 2 ML/KG)
     Route: 042
     Dates: start: 20210611
  3. GLUCOSE [Suspect]
     Active Substance: DEXTROSE
     Dosage: 243 ML, Q24H (2ND BAG;FLOW RATE INCREASED IN INCREMENTS FROM 0.9ML/H TO 28.5ML/H)
     Route: 042
     Dates: start: 20210612
  4. PRIMENE [Suspect]
     Active Substance: ALANINE\ARGININE\ASPARTIC ACID\CYSTEINE\GLUTAMIC ACID\GLYCINE\HISTIDINE\ISOLEUCINE\LEUCINE\LYSINE\METHIONINE\ORNITHINE HYDROCHLORIDE\PHENYLALANINE\PROLINE\SERINE\TAURINE\THREONINE\TRYPTOPHAN\TYROSINE\VALINE
     Indication: PRODUCT USED FOR UNKNOWN INDICATION
     Dosage: 167 ML, Q24H (1ST BAG)
     Route: 042
     Dates: start: 20210611
  5. ZINC. [Suspect]
     Active Substance: ZINC
     Dosage: 0.4 ML, Q24H (3RD BAG)
     Route: 042
     Dates: start: 20210613
  6. CALCIUM GLUCONATE. [Suspect]
     Active Substance: CALCIUM GLUCONATE
     Dosage: 15 ML, Q24H (3RD BAG)
     Route: 042
     Dates: start: 20210613
  7. GLUCOSE [Suspect]
     Active Substance: DEXTROSE
     Dosage: 243 ML, Q24H (3RD BAG, 2 ML/KG)
     Route: 042
     Dates: start: 20210613
  8. SANDOSTATINE [Suspect]
     Active Substance: OCTREOTIDE ACETATE
  9. CALCIUM GLUCONATE. [Suspect]
     Active Substance: CALCIUM GLUCONATE
     Indication: PARENTERAL NUTRITION
     Dosage: 15 ML, Q24H (1ST BAG)
     Route: 042
     Dates: start: 20210611
  10. CALCIUM GLUCONATE. [Suspect]
     Active Substance: CALCIUM GLUCONATE
     Dosage: 15 ML, Q24H (2ND BAG;FLOW RATE INCREASED IN INCREMENTS FROM 0.9ML/H TO 28.5ML/H)
     Route: 042
     Dates: start: 20210612
  11. PRIMENE [Suspect]
     Active Substance: ALANINE\ARGININE\ASPARTIC ACID\CYSTEINE\GLUTAMIC ACID\GLYCINE\HISTIDINE\ISOLEUCINE\LEUCINE\LYSINE\METHIONINE\ORNITHINE HYDROCHLORIDE\PHENYLALANINE\PROLINE\SERINE\TAURINE\THREONINE\TRYPTOPHAN\TYROSINE\VALINE
     Dosage: 167 ML, Q24H (3RD BAG)
     Route: 042
     Dates: start: 20210613
  12. SODIUM CHLORIDE. [Suspect]
     Active Substance: SODIUM CHLORIDE
     Dosage: 0.9 ML, Q24H (3RD BAG)
     Route: 042
     Dates: start: 20210612
  13. SODIUM CHLORIDE. [Suspect]
     Active Substance: SODIUM CHLORIDE
     Dosage: 0.9 ML, Q24H (2ND BAG;FLOW RATE INCREASED IN INCREMENTS FROM 0.9ML/H TO 28.5ML/H)
     Route: 042
     Dates: start: 20210612
  14. POTASSIUM CHLORIDE. [Suspect]
     Active Substance: POTASSIUM CHLORIDE
     Dosage: 1.2 ML, Q24H (3RD BAG)
     Route: 042
     Dates: start: 20210613
  15. SANDOSTATINE [Suspect]
     Active Substance: OCTREOTIDE ACETATE
     Indication: HYPERINSULINISM
     Dosage: 35 UG/KG QD
     Route: 042
     Dates: start: 20210512
  16. MAGNESIUM SULPHATE [Suspect]
     Active Substance: MAGNESIUM SULFATE
     Dosage: 0.5 ML, Q24H (3RD BAG)
     Route: 042
     Dates: start: 20210613
  17. PHOCYTAN [Suspect]
     Active Substance: .ALPHA.-GLUCOSE-1-PHOSPHATE
     Dosage: 18 ML, Q24H (3RD BAG)
     Route: 042
     Dates: start: 20210612
  18. PHOCYTAN [Suspect]
     Active Substance: .ALPHA.-GLUCOSE-1-PHOSPHATE
     Dosage: 18 ML (2ND BAG;FLOW RATE INCREASED IN INCREMENTS FROM 0.9ML/H TO 28.5ML/H)
     Route: 042
     Dates: start: 20210612
  19. VANCOMYCINE [Suspect]
     Active Substance: VANCOMYCIN
     Indication: STAPHYLOCOCCAL SEPSIS
     Dosage: 345 MG, QD
     Route: 042
     Dates: start: 20210608, end: 20210615
  20. PRIMENE [Suspect]
     Active Substance: ALANINE\ARGININE\ASPARTIC ACID\CYSTEINE\GLUTAMIC ACID\GLYCINE\HISTIDINE\ISOLEUCINE\LEUCINE\LYSINE\METHIONINE\ORNITHINE HYDROCHLORIDE\PHENYLALANINE\PROLINE\SERINE\TAURINE\THREONINE\TRYPTOPHAN\TYROSINE\VALINE
     Dosage: 167 ML, Q24H (2ND BAG;FLOW RATE INCREASED IN INCREMENTS FROM 0.9ML/H TO 28.5ML/H)
     Route: 042
     Dates: start: 20210612
  21. SODIUM CHLORIDE. [Suspect]
     Active Substance: SODIUM CHLORIDE
     Indication: PARENTERAL NUTRITION
     Dosage: 0.9 ML, Q24H (1ST BAG)
     Route: 042
     Dates: start: 20210611
  22. POTASSIUM CHLORIDE. [Suspect]
     Active Substance: POTASSIUM CHLORIDE
     Dosage: 1.2 ML, Q24H (2ND BAG;FLOW RATE INCREASED IN INCREMENTS FROM 0.9ML/H TO 28.5ML/H)
     Route: 042
     Dates: start: 20210612
  23. SANDOSTATINE [Suspect]
     Active Substance: OCTREOTIDE ACETATE
  24. MAGNESIUM SULPHATE [Suspect]
     Active Substance: MAGNESIUM SULFATE
     Indication: PARENTERAL NUTRITION
     Dosage: 0.5 ML, Q24H (1ST BAG)
     Route: 042
     Dates: start: 20210611
  25. MAGNESIUM SULPHATE [Suspect]
     Active Substance: MAGNESIUM SULFATE
     Dosage: 0.5 ML, Q24H (2ND BAG;FLOW RATE INCREASED IN INCREMENTS FROM 0.9ML/H TO 28.5ML/H)
     Route: 042
     Dates: start: 20210612
  26. PHOCYTAN [Suspect]
     Active Substance: .ALPHA.-GLUCOSE-1-PHOSPHATE
     Indication: PARENTERAL NUTRITION
     Dosage: 18 ML (1ST BAG)
     Route: 042
     Dates: start: 20210611
  27. POTASSIUM CHLORIDE. [Suspect]
     Active Substance: POTASSIUM CHLORIDE
     Indication: PARENTERAL NUTRITION
     Dosage: 1.2 ML, Q24H (1ST BAG)
     Route: 042
     Dates: start: 20210611
  28. ZINC. [Suspect]
     Active Substance: ZINC
     Indication: PARENTERAL NUTRITION
     Dosage: 0.4 ML, Q24H (1ST BAG)
     Route: 042
     Dates: start: 20210611
  29. ZINC. [Suspect]
     Active Substance: ZINC
     Dosage: 0.4 ML, Q24H (2ND BAG;FLOW RATE INCREASED IN INCREMENTS FROM 0.9ML/H TO 28.5ML/H)
     Route: 042
     Dates: start: 20210612

REACTIONS (2)
  - Hypoglycaemia [Recovered/Resolved]
  - Product preparation error [Unknown]

NARRATIVE: CASE EVENT DATE: 202106
